FAERS Safety Report 4985809-8 (Version None)
Quarter: 2006Q2

REPORT INFORMATION
  Report Type: 
  Country: None (occurrence: None)
  Receive Date: 20060421
  Receipt Date: 20060411
  Transmission Date: 20061013
  Serious: Yes (Life-Threatening, Hospitalization, Other)
  Sender: FDA-Public Use
  Company Number: 2006049590

PATIENT
  Age: 49 Year
  Sex: Female

DRUGS (8)
  1. CELECOXIB (CELECOXIB) [Suspect]
     Indication: ILL-DEFINED DISORDER
  2. NEULASTA [Suspect]
     Indication: CHEMOTHERAPY
     Dates: start: 20051110
  3. RAMIPRIL [Suspect]
     Indication: ILL-DEFINED DISORDER
  4. GALENIC /FLUTICASONE/SALMETEROL/ (FLUTICASONE, SALMETEROL) [Concomitant]
  5. DEXAMETHASONE [Concomitant]
  6. DOXORUBICIN HCL [Concomitant]
  7. CYCLOPHOSPHAMIDE [Concomitant]
  8. HYDROCHLOROTHIAZIDE [Concomitant]

REACTIONS (6)
  - ANAPHYLACTIC REACTION [None]
  - PARAESTHESIA [None]
  - PRURITUS [None]
  - RASH [None]
  - URTICARIA [None]
  - WHEEZING [None]
